FAERS Safety Report 23057728 (Version 7)
Quarter: 2024Q4

REPORT INFORMATION
  Report Type: Report from Study
  Country: ES (occurrence: ES)
  Receive Date: 20231012
  Receipt Date: 20241029
  Transmission Date: 20250115
  Serious: Yes (Hospitalization, Other)
  Sender: TAKEDA
  Company Number: ES-TAKEDA-2023TUS060176

PATIENT
  Age: 6 Year
  Sex: Male

DRUGS (16)
  1. TEDUGLUTIDE [Suspect]
     Active Substance: TEDUGLUTIDE
     Indication: Short-bowel syndrome
     Dosage: 0.8 MILLIGRAM, QD
     Route: 042
     Dates: start: 20210610, end: 20230203
  2. TEDUGLUTIDE [Suspect]
     Active Substance: TEDUGLUTIDE
     Indication: Short-bowel syndrome
     Dosage: 0.8 MILLIGRAM, QD
     Route: 042
     Dates: start: 20210610, end: 20230203
  3. TEDUGLUTIDE [Suspect]
     Active Substance: TEDUGLUTIDE
     Indication: Short-bowel syndrome
     Dosage: 0.8 MILLIGRAM, QD
     Route: 042
     Dates: start: 20210610, end: 20230203
  4. TEDUGLUTIDE [Suspect]
     Active Substance: TEDUGLUTIDE
     Indication: Short-bowel syndrome
     Dosage: 0.8 MILLIGRAM, QD
     Route: 042
     Dates: start: 20210610, end: 20230203
  5. TEDUGLUTIDE [Suspect]
     Active Substance: TEDUGLUTIDE
     Dosage: 1 MILLIGRAM, QD
     Route: 042
     Dates: start: 20230203
  6. TEDUGLUTIDE [Suspect]
     Active Substance: TEDUGLUTIDE
     Dosage: 1 MILLIGRAM, QD
     Route: 042
     Dates: start: 20230203
  7. TEDUGLUTIDE [Suspect]
     Active Substance: TEDUGLUTIDE
     Dosage: 1 MILLIGRAM, QD
     Route: 042
     Dates: start: 20230203
  8. TEDUGLUTIDE [Suspect]
     Active Substance: TEDUGLUTIDE
     Dosage: 1 MILLIGRAM, QD
     Route: 042
     Dates: start: 20230203
  9. VENOFER [Concomitant]
     Active Substance: IRON SUCROSE
     Indication: Iron deficiency
     Dosage: 100 MILLIGRAM, SINGLE
     Route: 042
     Dates: start: 20200821, end: 20200821
  10. VENOFER [Concomitant]
     Active Substance: IRON SUCROSE
     Dosage: 100 MILLIGRAM, SINGLE
     Route: 042
     Dates: start: 20210611, end: 20210611
  11. IRON [Concomitant]
     Active Substance: IRON
     Indication: Iron deficiency
     Dosage: 282 MILLILITER, QD
     Route: 042
     Dates: start: 20230911, end: 20230911
  12. AZITHROMYCIN [Concomitant]
     Active Substance: AZITHROMYCIN
     Indication: Gastroenteritis
     Dosage: UNK
     Route: 065
     Dates: start: 202309, end: 202309
  13. FISIOGEN FERRO FORTE [Concomitant]
     Indication: Iron deficiency
     Dosage: 800 INTERNATIONAL UNIT, QD
     Route: 048
     Dates: start: 20230823
  14. Prodefen plus [Concomitant]
     Indication: Gastrointestinal disorder
     Dosage: 1 DOSAGE FORM
     Route: 048
     Dates: start: 20230823, end: 20231215
  15. RIFAXIMIN [Concomitant]
     Active Substance: RIFAXIMIN
     Indication: Gastrointestinal disorder
     Dosage: 0.5 DOSAGE FORM
     Route: 048
     Dates: start: 20230823, end: 20231215
  16. METRONIDAZOLE [Concomitant]
     Active Substance: METRONIDAZOLE
     Indication: Gastrointestinal disorder
     Dosage: 3 MILLILITER
     Route: 048
     Dates: start: 20230823, end: 20231215

REACTIONS (12)
  - Device related sepsis [Recovered/Resolved]
  - Enterobacter infection [Recovered/Resolved]
  - Gastroenteritis cryptosporidial [Recovered/Resolved]
  - Thrombosis [Recovered/Resolved]
  - Influenza [Recovered/Resolved]
  - Vitamin D deficiency [Recovered/Resolved]
  - Iron deficiency [Recovered/Resolved]
  - Gastroenteritis [Recovered/Resolved]
  - Anaemia [Recovered/Resolved]
  - Blood thyroid stimulating hormone increased [Recovered/Resolved]
  - Eosinophilia [Not Recovered/Not Resolved]
  - Metabolic acidosis [Recovered/Resolved]

NARRATIVE: CASE EVENT DATE: 20230522
